FAERS Safety Report 9899945 (Version 1)
Quarter: 2014Q1

REPORT INFORMATION
  Report Type: Not Available
  Country: US (occurrence: US)
  Receive Date: 20140214
  Receipt Date: 20140214
  Transmission Date: 20141002
  Serious: No
  Sender: FDA-Public Use
  Company Number: US-VIVUS-2013V1000834

PATIENT
  Sex: Female
  Weight: 145.73 kg

DRUGS (8)
  1. QSYMIA 7.5MG/46MG [Suspect]
     Indication: WEIGHT DECREASED
     Route: 048
     Dates: start: 20130914, end: 20130927
  2. METFORMIN [Concomitant]
     Indication: TYPE 2 DIABETES MELLITUS
     Dates: start: 2011
  3. NIFEDIPINE [Concomitant]
     Indication: HYPERTENSION
     Dates: start: 20131107
  4. PRE-NATAL PLUS (VITAMINS) [Concomitant]
     Indication: VITAMIN SUPPLEMENTATION
     Dates: start: 20131107
  5. SPRING VALLEY PRE-NATAL VITAMINS WITH FOLIC ACID [Concomitant]
     Indication: VITAMIN SUPPLEMENTATION
     Dosage: OTC VITAMINS TAKEN DURING THE LAST 2 WEEKS, TOOK THE LAST VITAMIN ON 07 NOV 2013
     Dates: start: 2013, end: 20131107
  6. METHYLDOPA [Concomitant]
     Indication: HYPERTENSION
     Dates: start: 20131028, end: 20131106
  7. PRAVASTATIN SODIUM [Concomitant]
     Indication: BLOOD CHOLESTEROL
     Dosage: TOOK FOR ABOUT 2 YEARS AND DISCONTINUED ONE MONTH AGO
  8. ERRIN [Concomitant]
     Indication: CONTRACEPTION
     Dosage: LAST DOSE WAS TAKEN AROUND 26 OCT 2013
     Dates: start: 2013, end: 201310

REACTIONS (1)
  - Pregnancy [Not Recovered/Not Resolved]
